FAERS Safety Report 4665448-9 (Version None)
Quarter: 2005Q2

REPORT INFORMATION
  Report Type: 
  Country: None (occurrence: None)
  Receive Date: 20050518
  Receipt Date: 20050518
  Transmission Date: 20051028
  Serious: Yes (Life-Threatening, Hospitalization)
  Sender: FDA-Public Use
  Company Number: None

PATIENT
  Sex: Male

DRUGS (21)
  1. HEPARIN [Suspect]
  2. COMBIVENT [Concomitant]
  3. ALBUTEROL [Concomitant]
  4. ASCORBIC ACID [Concomitant]
  5. CIPROFLOXACIN [Concomitant]
  6. CLINDAMYCIN [Concomitant]
  7. FELODIPINE [Concomitant]
  8. FERROUS SULFATE TAB [Concomitant]
  9. GABAPENTIN [Concomitant]
  10. INSULIN [Concomitant]
  11. IPRATROPIUM BROMIDE [Concomitant]
  12. LISINOPRIL [Concomitant]
  13. LOPERAMIDE [Concomitant]
  14. METOPROLOL [Concomitant]
  15. OMEPRAZOLE [Concomitant]
  16. OXYCODONE AND ACETAMINOPHEN [Concomitant]
  17. PENTOXIFYLINE [Concomitant]
  18. PRAZOSIN [Concomitant]
  19. SIMVASTATIN [Concomitant]
  20. VALSARTAN [Concomitant]
  21. WARFARIN SODIUM [Concomitant]

REACTIONS (1)
  - PLATELET COUNT DECREASED [None]
